FAERS Safety Report 5584081-8 (Version None)
Quarter: 2008Q1

REPORT INFORMATION
  Report Type: 
  Country: None (occurrence: None)
  Receive Date: 20080104
  Receipt Date: 20080104
  Transmission Date: 20080703
  Serious: Yes (Hospitalization)
  Sender: FDA-Public Use
  Company Number: None

PATIENT
  Age: 63 Year
  Sex: Male
  Weight: 66.2252 kg

DRUGS (8)
  1. ALIMTA [Suspect]
     Indication: NEOPLASM MALIGNANT
     Dosage: 500MG/M2 (IV)
     Route: 042
     Dates: end: 20071219
  2. ERBITUX [Suspect]
     Dosage: 250MG/M2 (IV)
     Route: 042
     Dates: end: 20071219
  3. RT [Suspect]
     Dates: end: 20071228
  4. AVAPRO [Concomitant]
  5. PROSCAR [Concomitant]
  6. VITAMIN B [Concomitant]
  7. IBUPROFEN [Concomitant]
  8. OXYCODONE [Concomitant]

REACTIONS (4)
  - DEHYDRATION [None]
  - ORTHOSTATIC HYPOTENSION [None]
  - PNEUMONIA ASPIRATION [None]
  - PRESYNCOPE [None]
